FAERS Safety Report 12200422 (Version 3)
Quarter: 2016Q2

REPORT INFORMATION
  Report Type: Spontaneous
  Country: ID (occurrence: ID)
  Receive Date: 20160322
  Receipt Date: 20160623
  Transmission Date: 20160815
  Serious: Yes (Hospitalization, Other)
  Sender: FDA-Public Use
  Company Number: PHHY2016ID032104

PATIENT

DRUGS (3)
  1. AFINITOR [Suspect]
     Active Substance: EVEROLIMUS
     Indication: BREAST CANCER
     Dosage: UNK
     Route: 065
  2. FEMARA [Suspect]
     Active Substance: LETROZOLE
     Indication: BREAST CANCER
     Route: 065
  3. AFINITOR [Suspect]
     Active Substance: EVEROLIMUS
     Dosage: 5 MG, QD
     Route: 065

REACTIONS (7)
  - Stomatitis [Unknown]
  - Blood sodium increased [Unknown]
  - Loss of consciousness [Unknown]
  - Respiratory tract infection [Unknown]
  - White blood cell count decreased [Recovering/Resolving]
  - Hyponatraemia [Recovered/Resolved]
  - Blood glucose increased [Unknown]
